FAERS Safety Report 17009913 (Version 1)
Quarter: 2019Q4

REPORT INFORMATION
  Report Type: Spontaneous
  Country: US (occurrence: US)
  Receive Date: 20191108
  Receipt Date: 20191108
  Transmission Date: 20200122
  Serious: Yes (Hospitalization)
  Sender: FDA-Public Use
  Company Number: US-PFIZER INC-2019480591

PATIENT
  Age: 49 Year
  Sex: Male

DRUGS (2)
  1. BOSULIF [Suspect]
     Active Substance: BOSUTINIB MONOHYDRATE
     Dosage: UNK
  2. BOSULIF [Suspect]
     Active Substance: BOSUTINIB MONOHYDRATE
     Dosage: 600 MG, 1X/DAY (TAKE 1 (100MG) WITH 1 (500MG) TOTAL 600 MG PO (PER ORAL) QD (ONE A DAY))
     Route: 048
     Dates: start: 20190306

REACTIONS (1)
  - Constipation [Unknown]
